FAERS Safety Report 8615146-1 (Version None)
Quarter: 2012Q3

REPORT INFORMATION
  Report Type: 
  Country: None (occurrence: None)
  Receive Date: 20120814
  Receipt Date: 20120814
  Transmission Date: 20120928
  Serious: No
  Sender: FDA-Public Use
  Company Number: None

PATIENT
  Age: 66 Year
  Sex: Male
  Weight: 60.7 kg

DRUGS (1)
  1. PACLITAXEL [Suspect]
     Indication: UPPER RESPIRATORY TRACT INFECTION
     Dosage: 86 MG ONCE IV
     Route: 042
     Dates: start: 20111014, end: 20111014

REACTIONS (5)
  - ANXIETY [None]
  - BLOOD PRESSURE INCREASED [None]
  - HYPERTENSION [None]
  - INFUSION RELATED REACTION [None]
  - RESPIRATORY DEPRESSION [None]
